FAERS Safety Report 7530303-3 (Version None)
Quarter: 2011Q2

REPORT INFORMATION
  Report Type: 
  Country: None (occurrence: None)
  Receive Date: 20110531
  Receipt Date: 20110519
  Transmission Date: 20111010
  Serious: Yes (Other)
  Sender: FDA-Public Use
  Company Number: GB-ACCORD-009239

PATIENT
  Age: 46 Year
  Sex: Female

DRUGS (3)
  1. SIMVASTATIN [Suspect]
     Indication: TYPE IIA HYPERLIPIDAEMIA
     Dosage: 40.00 MG
  2. EZETIMIBE [Concomitant]
     Dosage: 10.00 MG
  3. FENOFIBRATE [Suspect]
     Indication: TYPE IIA HYPERLIPIDAEMIA
     Dosage: 160.00 MG

REACTIONS (2)
  - DRUG INTERACTION [None]
  - HIGH DENSITY LIPOPROTEIN DECREASED [None]
